FAERS Safety Report 12532333 (Version 1)
Quarter: 2016Q3

REPORT INFORMATION
  Report Type: Spontaneous
  Country: DE (occurrence: DE)
  Receive Date: 20160706
  Receipt Date: 20160706
  Transmission Date: 20161109
  Serious: Yes (Other)
  Sender: FDA-Public Use
  Company Number: DE-MERZ NORTH AMERICA, INC.-16MRZ-00398

PATIENT
  Sex: Female

DRUGS (1)
  1. XEOMIN [Suspect]
     Active Substance: INCOBOTULINUMTOXINA
     Indication: SKIN WRINKLING

REACTIONS (3)
  - Angioedema [Recovering/Resolving]
  - Anaphylactic shock [Recovering/Resolving]
  - Brow ptosis [Recovering/Resolving]

NARRATIVE: CASE EVENT DATE: 20160615
